FAERS Safety Report 10186450 (Version 1)
Quarter: 2014Q2

REPORT INFORMATION
  Report Type: Spontaneous
  Country: US (occurrence: US)
  Receive Date: 20140521
  Receipt Date: 20140521
  Transmission Date: 20141212
  Serious: No
  Sender: FDA-Public Use
  Company Number: US-ASTRAZENECA-2013SE49208

PATIENT
  Age: 26 Year
  Sex: Male

DRUGS (7)
  1. PULMICORT [Suspect]
     Indication: ASTHMA
     Route: 055
  2. NEXIUM [Suspect]
     Route: 048
  3. METOPROLOL [Suspect]
     Route: 065
  4. BROVANA [Suspect]
     Indication: ASTHMA
     Route: 065
     Dates: start: 201306
  5. PREDNISONE [Suspect]
     Indication: ASTHMA
     Route: 065
  6. IPRATROPIUM [Concomitant]
  7. GROWTH HARMONE THERAPY [Concomitant]

REACTIONS (3)
  - Tremor [Unknown]
  - Off label use [Unknown]
  - Drug administration error [Unknown]
